FAERS Safety Report 6811197-8 (Version None)
Quarter: 2010Q2

REPORT INFORMATION
  Report Type: 
  Country: None (occurrence: None)
  Receive Date: 20100630
  Receipt Date: 20090824
  Transmission Date: 20101027
  Serious: No
  Sender: FDA-Public Use
  Company Number: US-AMGEN-KDL362027

PATIENT
  Sex: Male
  Weight: 97.2 kg

DRUGS (12)
  1. PROCRIT [Suspect]
     Indication: ANAEMIA
     Dates: start: 20090716, end: 20090816
  2. MICARDIS [Concomitant]
  3. METOLAZONE [Concomitant]
  4. DEMADEX [Concomitant]
  5. UNSPECIFIED INHALER [Concomitant]
  6. TOPRAL [Concomitant]
  7. TRACLEER [Concomitant]
  8. SOMA [Concomitant]
  9. COSUDEX [Concomitant]
  10. POTASSIUM [Concomitant]
     Route: 048
  11. NEURONTIN [Concomitant]
  12. MULTI-VITAMINS [Concomitant]

REACTIONS (2)
  - DECREASED APPETITE [None]
  - JOINT SWELLING [None]
